FAERS Safety Report 15581200 (Version 1)
Quarter: 2018Q4

REPORT INFORMATION
  Report Type: Spontaneous
  Country: US (occurrence: US)
  Receive Date: 20181105
  Receipt Date: 20181105
  Transmission Date: 20190205
  Serious: Yes (Hospitalization)
  Sender: FDA-Public Use
  Company Number: US-UNICHEM PHARMACEUTICALS (USA) INC-UCM201805-000120

PATIENT
  Sex: Female

DRUGS (1)
  1. LAMOTRIGINE. [Suspect]
     Active Substance: LAMOTRIGINE

REACTIONS (3)
  - Hypersensitivity [Unknown]
  - Swollen tongue [Unknown]
  - Urticaria [Unknown]
